FAERS Safety Report 16073494 (Version 1)
Quarter: 2019Q1

REPORT INFORMATION
  Report Type: Report from Study
  Country: ES (occurrence: ES)
  Receive Date: 20190314
  Receipt Date: 20190314
  Transmission Date: 20190418
  Serious: Yes (Hospitalization)
  Sender: FDA-Public Use
  Company Number: ES-TEVA-2019-ES-1022822

PATIENT
  Age: 4 Year
  Sex: Male
  Weight: 17.6 kg

DRUGS (3)
  1. FLUDARABINA FOSFATO (3698FO) [Suspect]
     Active Substance: FLUDARABINE PHOSPHATE
     Indication: PREMEDICATION
     Dosage: 25 MILLIGRAM DAILY;
     Route: 042
     Dates: start: 20171116, end: 20171119
  2. BUSULFANO (76A) [Suspect]
     Active Substance: BUSULFAN
     Indication: PREMEDICATION
     Dosage: 85 MILLIGRAM DAILY;
     Route: 042
     Dates: start: 20171116, end: 20171119
  3. TIOTEPA (747A) [Suspect]
     Active Substance: THIOTEPA
     Indication: PREMEDICATION
     Dosage: 8705 MILLIGRAM DAILY;
     Route: 042
     Dates: start: 20171114, end: 20171116

REACTIONS (2)
  - Gastrointestinal inflammation [Recovered/Resolved]
  - Neutropenia [Recovered/Resolved]

NARRATIVE: CASE EVENT DATE: 20171120
